FAERS Safety Report 7968915-5 (Version None)
Quarter: 2011Q4

REPORT INFORMATION
  Report Type: 
  Country: None (occurrence: None)
  Receive Date: 20111208
  Receipt Date: 20111124
  Transmission Date: 20120403
  Serious: Yes (Hospitalization, Other)
  Sender: FDA-Public Use
  Company Number: 1000024559

PATIENT
  Age: 61 Year
  Sex: Male
  Weight: 86 kg

DRUGS (5)
  1. LOSEC (OMEPRAZOLE) (OMEPRAZOLE) [Concomitant]
  2. VASOTEC (ENALAPRIL MALEATE) (ENALAPRIL MALEATE) [Concomitant]
  3. ESCITALOPRAM OXALATE [Suspect]
     Indication: DEPRESSION
     Dosage: 20 MG (10 MG,2 IN 1 D),ORAL
     Route: 048
     Dates: start: 20100101, end: 20110211
  4. ESCITALOPRAM OXALATE [Suspect]
     Indication: ANXIETY
     Dosage: 20 MG (10 MG,2 IN 1 D),ORAL
     Route: 048
     Dates: start: 20100101, end: 20110211
  5. EZETROL (EZETIMIBE) (TABLETS) (EZETIMIBE) [Concomitant]

REACTIONS (9)
  - SUICIDAL IDEATION [None]
  - VISUAL IMPAIRMENT [None]
  - DIZZINESS [None]
  - BRUXISM [None]
  - INSOMNIA [None]
  - HEADACHE [None]
  - CONVULSION [None]
  - MYALGIA [None]
  - CONFUSIONAL STATE [None]
